FAERS Safety Report 21786678 (Version 1)
Quarter: 2022Q4

REPORT INFORMATION
  Report Type: Report from Study
  Country: NO (occurrence: None)
  Receive Date: 20221228
  Receipt Date: 20221228
  Transmission Date: 20230113
  Serious: Yes (Hospitalization)
  Sender: FDA-Public Use
  Company Number: NO-ROCHE-2247004

PATIENT
  Age: 62 Year
  Sex: Male

DRUGS (12)
  1. PIRFENIDONE [Suspect]
     Active Substance: PIRFENIDONE
     Indication: Bronchiolitis obliterans syndrome
     Dosage: TITRATED TO A MAINTENANCE DOSE OF 2403 MG/D (3 TABLETS TID, FOR A TOTAL OF 9 TABLETS/DAY).
     Route: 048
     Dates: start: 20181207, end: 20190101
  2. PROGRAF [Concomitant]
     Active Substance: TACROLIMUS
  3. PREDNISOLONE [Concomitant]
     Active Substance: PREDNISOLONE
  4. ZITHROMAX [Concomitant]
     Active Substance: AZITHROMYCIN DIHYDRATE
  5. PANTOPRAZOLE SODIUM [Concomitant]
     Active Substance: PANTOPRAZOLE SODIUM
  6. NIFEDIPINE [Concomitant]
     Active Substance: NIFEDIPINE
  7. CALCIUM CARBONATE\CHOLECALCIFEROL [Concomitant]
     Active Substance: CALCIUM CARBONATE\CHOLECALCIFEROL
  8. CIPRALEX [Concomitant]
     Active Substance: ESCITALOPRAM OXALATE
  9. REMERON [Concomitant]
     Active Substance: MIRTAZAPINE
  10. VALCYTE [Concomitant]
     Active Substance: VALGANCICLOVIR HYDROCHLORIDE
  11. BACTRIM [Concomitant]
     Active Substance: SULFAMETHOXAZOLE\TRIMETHOPRIM
  12. CELLCEPT [Concomitant]
     Active Substance: MYCOPHENOLATE MOFETIL
     Route: 048

REACTIONS (3)
  - Pulmonary function test decreased [Unknown]
  - Bronchiolitis obliterans syndrome [Unknown]
  - Dyspnoea [Unknown]

NARRATIVE: CASE EVENT DATE: 20181215
